FAERS Safety Report 5425269-6 (Version None)
Quarter: 2007Q3

REPORT INFORMATION
  Report Type: 
  Country: None (occurrence: None)
  Receive Date: 20070824
  Receipt Date: 20070810
  Transmission Date: 20080115
  Serious: Yes (Other)
  Sender: FDA-Public Use
  Company Number: CA-PFIZER INC-2007039805

PATIENT
  Sex: Female
  Weight: 57.6 kg

DRUGS (9)
  1. LYRICA [Suspect]
     Indication: MIGRAINE PROPHYLAXIS
     Route: 048
  2. MAXALT [Suspect]
     Indication: MIGRAINE
     Route: 048
  3. DRUG, UNSPECIFIED [Concomitant]
     Indication: MIGRAINE
  4. CLONAZEPAM [Concomitant]
     Indication: FIBROMYALGIA
  5. M-ESLON [Concomitant]
     Indication: FIBROMYALGIA
  6. SYNTHROID [Concomitant]
     Dosage: DAILY DOSE:.15MG
  7. ELAVIL [Concomitant]
     Indication: FIBROMYALGIA
  8. PREMARIN [Concomitant]
     Dosage: DAILY DOSE:.625MG
  9. PROVERA [Concomitant]
     Dosage: DAILY DOSE:5MG

REACTIONS (3)
  - APHASIA [None]
  - DYSPHEMIA [None]
  - DYSPHORIA [None]
